FAERS Safety Report 18888596 (Version 1)
Quarter: 2021Q1

REPORT INFORMATION
  Report Type: Report from Study
  Country: US (occurrence: US)
  Receive Date: 20210212
  Receipt Date: 20210212
  Transmission Date: 20210420
  Serious: Yes (Hospitalization)
  Sender: FDA-Public Use
  Company Number: US-JNJFOC-20201028239

PATIENT
  Age: 69 Year
  Sex: Male
  Weight: 63.56 kg

DRUGS (5)
  1. OPSUMIT [Suspect]
     Active Substance: MACITENTAN
     Route: 048
  2. SILDENAFIL CITRATE. [Concomitant]
     Active Substance: SILDENAFIL CITRATE
  3. OPSUMIT [Suspect]
     Active Substance: MACITENTAN
     Indication: PULMONARY ARTERIAL HYPERTENSION
     Route: 048
  4. SELEXIPAG [Suspect]
     Active Substance: SELEXIPAG
     Indication: PULMONARY ARTERIAL HYPERTENSION
     Route: 048
  5. AMLODIPINE [Concomitant]
     Active Substance: AMLODIPINE BESYLATE

REACTIONS (11)
  - Vomiting [Unknown]
  - Adverse drug reaction [Unknown]
  - Apathy [Unknown]
  - Hyperhidrosis [Unknown]
  - Lethargy [Unknown]
  - Asthenia [Unknown]
  - Depression [Unknown]
  - Condition aggravated [Unknown]
  - Pneumonia aspiration [Unknown]
  - Faeces soft [Unknown]
  - Psychomotor skills impaired [Unknown]

NARRATIVE: CASE EVENT DATE: 20201020
